FAERS Safety Report 6600555-2 (Version None)
Quarter: 2010Q1

REPORT INFORMATION
  Report Type: 
  Country: None (occurrence: None)
  Receive Date: 20100224
  Receipt Date: 20100215
  Transmission Date: 20100710
  Serious: Yes (Hospitalization)
  Sender: FDA-Public Use
  Company Number: GB-GENENTECH-298264

PATIENT
  Sex: Male
  Weight: 86 kg

DRUGS (3)
  1. RITUXIMAB [Suspect]
     Indication: MANTLE CELL LYMPHOMA
     Dosage: 790 MG, X1
     Route: 042
     Dates: start: 20100208, end: 20100209
  2. FLUDARABINE [Suspect]
     Indication: MANTLE CELL LYMPHOMA
     Dosage: 80 MG, Q3D
     Route: 048
     Dates: start: 20100209
  3. CYCLOPHOSPHAMIDE [Suspect]
     Indication: MANTLE CELL LYMPHOMA
     Dosage: 500 MG, Q3D
     Route: 048
     Dates: start: 20100209

REACTIONS (1)
  - HYPERSENSITIVITY [None]
